FAERS Safety Report 8445437-9 (Version None)
Quarter: 2012Q2

REPORT INFORMATION
  Report Type: 
  Country: None (occurrence: None)
  Receive Date: 20120618
  Receipt Date: 20120412
  Transmission Date: 20120825
  Serious: No
  Sender: FDA-Public Use
  Company Number: US-TEVA-333415USA

PATIENT
  Sex: Female
  Weight: 95.34 kg

DRUGS (5)
  1. CYCLOBENZAPRINE HCL [Concomitant]
     Indication: MUSCLE RELAXANT THERAPY
     Dosage: 30 MILLIGRAM;
     Route: 048
  2. ESOMEPRAZOLE MAGNESIUM [Concomitant]
     Indication: GASTROOESOPHAGEAL REFLUX DISEASE
     Dosage: 20 MILLIGRAM;
     Route: 048
  3. FENTORA [Suspect]
     Indication: PAIN
     Route: 002
  4. ATORVASTATIN CALCIUM [Concomitant]
     Indication: BLOOD CHOLESTEROL
     Dosage: 20 MILLIGRAM;
     Route: 048
  5. OXYCODONE HYDROCHLORIDE [Concomitant]
     Indication: PAIN
     Dosage: 160 MILLIGRAM;
     Route: 002

REACTIONS (9)
  - PAIN [None]
  - NAUSEA [None]
  - VOMITING [None]
  - MUSCLE SPASMS [None]
  - HEADACHE [None]
  - FALL [None]
  - HYPERHIDROSIS [None]
  - BACK PAIN [None]
  - OFF LABEL USE [None]
